FAERS Safety Report 16742793 (Version 1)
Quarter: 2019Q3

REPORT INFORMATION
  Report Type: Spontaneous
  Country: RU (occurrence: RU)
  Receive Date: 20190826
  Receipt Date: 20190826
  Transmission Date: 20191005
  Serious: Yes (Other)
  Sender: FDA-Public Use
  Company Number: RU-009507513-1908RUS009391

PATIENT
  Age: 5 Year

DRUGS (1)
  1. SINGULAIR [Suspect]
     Active Substance: MONTELUKAST SODIUM
     Dosage: 4 MILLIGRAM
     Route: 048

REACTIONS (4)
  - Irritability [Unknown]
  - Nephritis [Unknown]
  - Tearfulness [Unknown]
  - Abnormal behaviour [Unknown]
